FAERS Safety Report 8557061 (Version 2)
Quarter: 2012Q4

REPORT INFORMATION
  Report Type: 
  Country: US (occurrence: US)
  Receive Date: 20120511
  Receipt Date: 20120904
  Transmission Date: 20130627
  Serious: Yes (Hospitalization)
  Sender: FDA-Public Use
  Company Number: US-ELI_LILLY_AND_COMPANY-US201205000201

PATIENT
  Age: 81 Year
  Sex: Female
  Weight: 65.94 kg

DRUGS (2)
  1. FORTEO [Suspect]
     Indication: OSTEOPOROSIS
     Dosage: 20 ug, qd
     Route: 058
     Dates: start: 20111122
  2. CHOLESTEROL [Concomitant]

REACTIONS (3)
  - Lower limb fracture [Unknown]
  - Memory impairment [Unknown]
  - Abasia [Unknown]
